FAERS Safety Report 11442869 (Version 2)
Quarter: 2015Q3

REPORT INFORMATION
  Report Type: Spontaneous
  Country: PL (occurrence: PL)
  Receive Date: 20150901
  Receipt Date: 20150917
  Transmission Date: 20151125
  Serious: Yes (Death, Other)
  Sender: FDA-Public Use
  Company Number: PL-BAXTER-2015BAX047290

PATIENT
  Age: 50 Year
  Sex: Male

DRUGS (6)
  1. PREDNISONE. [Suspect]
     Active Substance: PREDNISONE
     Indication: PLASMA CELL MYELOMA
     Dosage: 2 CYCLES
     Route: 065
  2. VINCRISTINE [Suspect]
     Active Substance: VINCRISTINE
     Indication: PLASMA CELL MYELOMA
     Dosage: 2 CYCLES
     Route: 065
  3. MELPHALAN [Suspect]
     Active Substance: MELPHALAN
     Indication: PLASMA CELL MYELOMA
     Dosage: 2 CYCLES
     Route: 065
  4. CARMUSTINE [Suspect]
     Active Substance: CARMUSTINE
     Indication: PLASMA CELL MYELOMA
     Dosage: 2 CYCLES
     Route: 065
  5. ENDOXAN [Suspect]
     Active Substance: CYCLOPHOSPHAMIDE
     Indication: PLASMA CELL MYELOMA
     Dosage: 2 CYCLES
     Route: 065
  6. SOLU-MEDROL [Suspect]
     Active Substance: METHYLPREDNISOLONE SODIUM SUCCINATE
     Indication: PLASMA CELL MYELOMA
     Dosage: PULSES
     Route: 065

REACTIONS (4)
  - Plasma cell myeloma [Unknown]
  - Metastases to skin [Unknown]
  - Death [Fatal]
  - Drug ineffective [Not Recovered/Not Resolved]
